FAERS Safety Report 8678384 (Version 6)
Quarter: 2013Q3

REPORT INFORMATION
  Report Type: Spontaneous
  Country: JP (occurrence: JP)
  Receive Date: 20120723
  Receipt Date: 20130926
  Transmission Date: 20140515
  Serious: Yes (Hospitalization, Other)
  Sender: FDA-Public Use
  Company Number: JP-ASTRAZENECA-2012SE50334

PATIENT
  Age: 22751 Day
  Sex: Male

DRUGS (1)
  1. CRESTOR [Suspect]
     Indication: HYPERCHOLESTEROLAEMIA
     Route: 048
     Dates: start: 20120712, end: 20120712

REACTIONS (3)
  - Erythema multiforme [Recovering/Resolving]
  - Anaphylactic reaction [Recovering/Resolving]
  - Hepatic function abnormal [Unknown]
